FAERS Safety Report 4351479-5 (Version None)
Quarter: 2004Q2

REPORT INFORMATION
  Report Type: 
  Country: None (occurrence: None)
  Receive Date: 20040428
  Receipt Date: 20040412
  Transmission Date: 20050107
  Serious: Yes (Congenital Anomaly, Other)
  Sender: FDA-Public Use
  Company Number: USA040363575

PATIENT
  Age: 0 Month
  Sex: Female
  Weight: 4 kg

DRUGS (2)
  1. HUMALOG [Suspect]
     Dates: start: 20030601
  2. LANTUS [Concomitant]

REACTIONS (3)
  - CONGENITAL VENTRICULAR SEPTAL DEFECT [None]
  - MATERNAL DRUGS AFFECTING FOETUS [None]
  - NICKEL SENSITIVITY [None]
